FAERS Safety Report 6045544-4 (Version None)
Quarter: 2009Q1

REPORT INFORMATION
  Report Type: 
  Country: None (occurrence: None)
  Receive Date: 20090121
  Receipt Date: 20090116
  Transmission Date: 20090719
  Serious: Yes (Other)
  Sender: FDA-Public Use
  Company Number: B0554705A

PATIENT
  Age: 75 Year
  Sex: Male

DRUGS (2)
  1. SERETIDE [Suspect]
     Indication: ASTHMA
     Route: 055
  2. VENTOLIN [Concomitant]
     Route: 055

REACTIONS (4)
  - COUGH [None]
  - FATIGUE [None]
  - PETIT MAL EPILEPSY [None]
  - PRODUCT QUALITY ISSUE [None]
